FAERS Safety Report 4733600-X (Version None)
Quarter: 2005Q3

REPORT INFORMATION
  Report Type: 
  Country: None (occurrence: None)
  Receive Date: 20050729
  Receipt Date: 20050623
  Transmission Date: 20060218
  Serious: No
  Sender: FDA-Public Use
  Company Number: COT_0103_2005

PATIENT
  Age: 77 Year
  Sex: Male
  Weight: 102.5129 kg

DRUGS (2)
  1. VENTAVIS [Suspect]
     Indication: PULMONARY HYPERTENSION
     Dosage: 5 MCG Q4HR IH
     Route: 055
     Dates: start: 20050608
  2. AMLODIPINE [Concomitant]

REACTIONS (4)
  - CHEST DISCOMFORT [None]
  - CONSTIPATION [None]
  - COUGH [None]
  - DYSPNOEA [None]
